FAERS Safety Report 13930588 (Version 69)
Quarter: 2019Q3

REPORT INFORMATION
  Report Type: Spontaneous
  Country: JP (occurrence: JP)
  Receive Date: 20170901
  Receipt Date: 20190927
  Transmission Date: 20191004
  Serious: Yes (Hospitalization, Other)
  Sender: FDA-Public Use
  Company Number: JP-JNJFOC-20170827690

PATIENT
  Age: 50 Year
  Sex: Male
  Weight: 117 kg

DRUGS (78)
  1. RISPERDAL [Suspect]
     Active Substance: RISPERIDONE
     Indication: IRRITABILITY
     Route: 048
     Dates: start: 2018
  2. RISPERDAL [Suspect]
     Active Substance: RISPERIDONE
     Indication: ANXIETY
     Dosage: PERORAL MEDICINE
     Route: 048
     Dates: start: 20190329
  3. RIVOTRIL [Concomitant]
     Active Substance: CLONAZEPAM
     Indication: ANXIETY
     Dosage: IN THE MORNING, IN THE EVENING, AT BEDTIME
     Route: 048
     Dates: start: 2019
  4. RIVOTRIL [Concomitant]
     Active Substance: CLONAZEPAM
     Dosage: IN THE MORNING, IN THE EVENING, AT BEDTIME
     Route: 048
     Dates: start: 2019
  5. BELSOMRA [Concomitant]
     Active Substance: SUVOREXANT
     Indication: INSOMNIA
     Route: 048
     Dates: start: 20190328
  6. AKINETON [Concomitant]
     Active Substance: BIPERIDEN HYDROCHLORIDE
     Indication: PRODUCT USED FOR UNKNOWN INDICATION
     Route: 048
  7. SILECE [Concomitant]
     Active Substance: FLUNITRAZEPAM
     Indication: PRODUCT USED FOR UNKNOWN INDICATION
     Route: 048
  8. METGLUCO [Concomitant]
     Active Substance: METFORMIN HYDROCHLORIDE
     Route: 048
  9. AZEPTIN                            /00884002/ [Concomitant]
     Indication: PRODUCT USED FOR UNKNOWN INDICATION
     Route: 048
  10. LUNESTA [Concomitant]
     Active Substance: ESZOPICLONE
     Indication: INSOMNIA
     Dosage: IN THE DAY TIME
     Route: 048
  11. RIVOTRIL [Concomitant]
     Active Substance: CLONAZEPAM
     Route: 048
  12. AMOBAN [Concomitant]
     Active Substance: ZOPICLONE
     Indication: PRODUCT USED FOR UNKNOWN INDICATION
     Route: 048
  13. AMLODIN [Concomitant]
     Active Substance: AMLODIPINE BESYLATE
     Route: 048
  14. TERNELIN [Concomitant]
     Active Substance: TIZANIDINE
     Indication: PRODUCT USED FOR UNKNOWN INDICATION
     Route: 048
  15. LAMICTAL [Concomitant]
     Active Substance: LAMOTRIGINE
     Dosage: AFTER DINNER
     Route: 048
  16. BENZALIN                           /00036201/ [Concomitant]
     Active Substance: NITRAZEPAM
     Indication: PRODUCT USED FOR UNKNOWN INDICATION
     Route: 048
     Dates: start: 20160728
  17. RISPERDAL [Suspect]
     Active Substance: RISPERIDONE
     Dosage: AS NECESSARY
     Route: 048
     Dates: start: 20190412
  18. RISPERDAL [Suspect]
     Active Substance: RISPERIDONE
     Route: 048
  19. RISPERDAL [Suspect]
     Active Substance: RISPERIDONE
     Indication: BIPOLAR DISORDER
     Route: 048
     Dates: start: 201410, end: 2014
  20. RIVOTRIL [Concomitant]
     Active Substance: CLONAZEPAM
     Route: 048
     Dates: start: 20161220, end: 20170605
  21. RIVOTRIL [Concomitant]
     Active Substance: CLONAZEPAM
     Route: 048
     Dates: start: 2017, end: 2018
  22. RIVOTRIL [Concomitant]
     Active Substance: CLONAZEPAM
     Route: 048
     Dates: start: 20190730
  23. SILECE [Concomitant]
     Active Substance: FLUNITRAZEPAM
     Route: 048
  24. LIMAS [Concomitant]
     Active Substance: LITHIUM CARBONATE
     Route: 048
     Dates: start: 20181225
  25. RISPERDAL [Suspect]
     Active Substance: RISPERIDONE
     Indication: IRRITABILITY
     Route: 048
     Dates: start: 20190422
  26. LOXONIN [Suspect]
     Active Substance: LOXOPROFEN SODIUM
     Indication: OSTEOARTHRITIS
     Route: 048
  27. RIVOTRIL [Concomitant]
     Active Substance: CLONAZEPAM
     Dosage: 0.5MG IN THE MORNING,0.5MG AT BEDTIME
     Route: 048
     Dates: start: 2018
  28. INVEGA [Concomitant]
     Active Substance: PALIPERIDONE
     Indication: PRODUCT USED FOR UNKNOWN INDICATION
     Route: 048
     Dates: start: 20170117
  29. WYPAX [Concomitant]
     Active Substance: LORAZEPAM
     Indication: PRODUCT USED FOR UNKNOWN INDICATION
     Route: 048
  30. AKINETON [Concomitant]
     Active Substance: BIPERIDEN HYDROCHLORIDE
     Route: 048
  31. AMLODIN [Concomitant]
     Active Substance: AMLODIPINE BESYLATE
     Route: 048
     Dates: start: 20150219
  32. DIOVAN [Concomitant]
     Active Substance: VALSARTAN
     Indication: HYPERTENSION
     Route: 048
  33. ACTOS [Concomitant]
     Active Substance: PIOGLITAZONE HYDROCHLORIDE
     Indication: PRODUCT USED FOR UNKNOWN INDICATION
     Route: 048
  34. LENDORMIN [Concomitant]
     Active Substance: BROTIZOLAM
     Indication: PRODUCT USED FOR UNKNOWN INDICATION
     Route: 048
  35. LIMAS [Concomitant]
     Active Substance: LITHIUM CARBONATE
     Route: 048
     Dates: start: 2018
  36. LITHIUM CARBONATE. [Concomitant]
     Active Substance: LITHIUM CARBONATE
     Route: 065
     Dates: start: 20181225, end: 20190121
  37. LUNESTA [Concomitant]
     Active Substance: ESZOPICLONE
     Dosage: AT BED TIME
     Route: 048
  38. RISPERIDONE. [Suspect]
     Active Substance: RISPERIDONE
     Indication: BIPOLAR DISORDER
     Route: 065
  39. RIVOTRIL [Concomitant]
     Active Substance: CLONAZEPAM
     Route: 048
     Dates: start: 20190730
  40. RIVOTRIL [Concomitant]
     Active Substance: CLONAZEPAM
     Route: 048
     Dates: start: 20190319
  41. BELSOMRA [Concomitant]
     Active Substance: SUVOREXANT
     Route: 048
     Dates: start: 20190422, end: 20190422
  42. AKINETON [Concomitant]
     Active Substance: BIPERIDEN HYDROCHLORIDE
     Dosage: P.R.N.(3 TIMES DAILY AT MOST)
     Route: 048
     Dates: start: 20150517
  43. XYLOCAINE [Concomitant]
     Active Substance: LIDOCAINE HYDROCHLORIDE
     Indication: PRODUCT USED FOR UNKNOWN INDICATION
     Route: 065
  44. LAMICTAL [Concomitant]
     Active Substance: LAMOTRIGINE
     Indication: BIPOLAR DISORDER
     Dosage: AFTER DINNER
     Route: 048
  45. LIMAS [Concomitant]
     Active Substance: LITHIUM CARBONATE
     Route: 048
     Dates: start: 20180406
  46. LUNESTA [Concomitant]
     Active Substance: ESZOPICLONE
     Dosage: IN THE MORNING
     Route: 048
  47. RISPERDAL [Suspect]
     Active Substance: RISPERIDONE
     Indication: BIPOLAR DISORDER
     Route: 048
     Dates: start: 2019, end: 2019
  48. RIVOTRIL [Concomitant]
     Active Substance: CLONAZEPAM
     Route: 048
     Dates: start: 20170606, end: 2017
  49. BETANIS [Concomitant]
     Active Substance: MIRABEGRON
     Indication: CYSTITIS
     Dosage: PERORAL MEDICINE
     Route: 048
  50. BELSOMRA [Concomitant]
     Active Substance: SUVOREXANT
     Route: 048
     Dates: start: 20161220
  51. LEVOTOMIN                          /00038602/ [Concomitant]
     Active Substance: LEVOMEPROMAZINE
     Indication: PRODUCT USED FOR UNKNOWN INDICATION
     Route: 048
  52. AMLODIN [Concomitant]
     Active Substance: AMLODIPINE BESYLATE
     Indication: HYPERTENSION
     Route: 048
  53. DIOVAN [Concomitant]
     Active Substance: VALSARTAN
     Route: 048
     Dates: start: 20170314
  54. LAMICTAL [Concomitant]
     Active Substance: LAMOTRIGINE
     Dosage: AFTER DINNER
     Route: 048
  55. LIMAS [Concomitant]
     Active Substance: LITHIUM CARBONATE
     Indication: PRODUCT USED FOR UNKNOWN INDICATION
     Dosage: AFTER DINNETR
     Route: 048
  56. SEDIEL [Concomitant]
     Active Substance: TANDOSPIRONE
     Route: 048
     Dates: start: 2018
  57. LITHIUM CARBONATE. [Concomitant]
     Active Substance: LITHIUM CARBONATE
     Route: 065
  58. LITHIUM CARBONATE. [Concomitant]
     Active Substance: LITHIUM CARBONATE
     Route: 065
  59. LITHIUM CARBONATE. [Concomitant]
     Active Substance: LITHIUM CARBONATE
     Route: 065
     Dates: start: 20190121
  60. RISPERDAL [Suspect]
     Active Substance: RISPERIDONE
     Indication: BIPOLAR DISORDER
     Route: 048
     Dates: end: 20150105
  61. AKINETON [Concomitant]
     Active Substance: BIPERIDEN HYDROCHLORIDE
     Route: 048
     Dates: start: 20160517, end: 20160613
  62. AKINETON [Concomitant]
     Active Substance: BIPERIDEN HYDROCHLORIDE
     Dosage: P.R.N.(4 TIMES DAILY AT MOST)
     Route: 048
     Dates: start: 20160614
  63. DIOVAN [Concomitant]
     Active Substance: VALSARTAN
     Route: 048
     Dates: start: 20170315
  64. METGLUCO [Concomitant]
     Active Substance: METFORMIN HYDROCHLORIDE
     Indication: PRODUCT USED FOR UNKNOWN INDICATION
     Route: 048
  65. CALONAL [Concomitant]
     Active Substance: ACETAMINOPHEN
     Indication: ARTHRALGIA
     Route: 048
     Dates: start: 20171003
  66. LIMAS [Concomitant]
     Active Substance: LITHIUM CARBONATE
     Route: 048
     Dates: start: 2018, end: 2018
  67. LITHIUM CARBONATE. [Concomitant]
     Active Substance: LITHIUM CARBONATE
     Indication: PRODUCT USED FOR UNKNOWN INDICATION
     Route: 065
  68. RISPERDAL [Suspect]
     Active Substance: RISPERIDONE
     Route: 048
     Dates: start: 20190423
  69. LOXONIN [Suspect]
     Active Substance: LOXOPROFEN SODIUM
     Indication: OSTEOARTHRITIS
     Route: 048
     Dates: start: 20180207
  70. BELSOMRA [Concomitant]
     Active Substance: SUVOREXANT
     Route: 048
     Dates: start: 20190328
  71. WYPAX [Concomitant]
     Active Substance: LORAZEPAM
     Route: 048
  72. AKINETON [Concomitant]
     Active Substance: BIPERIDEN HYDROCHLORIDE
     Dosage: P.R.N.(2 TIMES DAILY AT MOST)
     Route: 048
  73. LEVOTOMIN                          /00038602/ [Concomitant]
     Active Substance: LEVOMEPROMAZINE
     Route: 048
     Dates: start: 20150114, end: 20150114
  74. AMLODIN [Concomitant]
     Active Substance: AMLODIPINE BESYLATE
     Route: 048
  75. TIZANIDINE HYDROCHLORIDE. [Concomitant]
     Active Substance: TIZANIDINE HYDROCHLORIDE
     Indication: PRODUCT USED FOR UNKNOWN INDICATION
     Dosage: 3
     Route: 048
     Dates: start: 20180213
  76. SEDIEL [Concomitant]
     Active Substance: TANDOSPIRONE
     Indication: PRODUCT USED FOR UNKNOWN INDICATION
     Route: 048
     Dates: start: 20180518
  77. LORAZEPAM. [Concomitant]
     Active Substance: LORAZEPAM
     Indication: PRODUCT USED FOR UNKNOWN INDICATION
     Dosage: UNKNOWN, IN THE MORNING
     Route: 048
     Dates: start: 2018
  78. LORAZEPAM. [Concomitant]
     Active Substance: LORAZEPAM
     Route: 048

REACTIONS (60)
  - Loss of consciousness [Unknown]
  - Parkinsonism [Recovering/Resolving]
  - Bradykinesia [Unknown]
  - Malaise [Unknown]
  - Palpitations [Unknown]
  - Inappropriate schedule of product administration [Unknown]
  - Fatigue [Unknown]
  - Akathisia [Unknown]
  - Hypoaesthesia [Unknown]
  - Fall [Unknown]
  - Anxiety [Recovered/Resolved]
  - Thinking abnormal [Unknown]
  - Somnolence [Recovered/Resolved]
  - Tremor [Recovered/Resolved]
  - Mood altered [Unknown]
  - Nightmare [Unknown]
  - Drug abuse [Unknown]
  - Hyperuricaemia [Unknown]
  - Chest discomfort [Unknown]
  - Disturbance in attention [Unknown]
  - Panic reaction [Unknown]
  - Off label use [Unknown]
  - Flank pain [Unknown]
  - Drug dependence [Unknown]
  - Arteriosclerosis [Unknown]
  - Orthostatic hypotension [Unknown]
  - Mass [Unknown]
  - Dyslalia [Unknown]
  - Feeling abnormal [Unknown]
  - Memory impairment [Unknown]
  - Gastric ulcer haemorrhage [Unknown]
  - Akathisia [Recovered/Resolved]
  - Back pain [Unknown]
  - Treatment noncompliance [Unknown]
  - Hepatic function abnormal [Recovered/Resolved]
  - Haemoglobin decreased [Unknown]
  - Musculoskeletal stiffness [Unknown]
  - Rash [Unknown]
  - Gastrointestinal haemorrhage [Unknown]
  - Diabetes mellitus [Unknown]
  - Aphonia [Unknown]
  - Depression [Recovered/Resolved]
  - Dehydration [Unknown]
  - Plantar fasciitis [Unknown]
  - Asthenia [Unknown]
  - Dysphoria [Unknown]
  - Overdose [Unknown]
  - Heat illness [Unknown]
  - Incontinence [Recovered/Resolved]
  - Hypomania [Unknown]
  - Dyskinesia [Unknown]
  - Decreased appetite [Unknown]
  - Abdominal distension [Unknown]
  - Psychotic disorder [Unknown]
  - Therapeutic response decreased [Unknown]
  - Road traffic accident [Unknown]
  - Somatic symptom disorder [Unknown]
  - Constipation [Unknown]
  - Product use in unapproved indication [Unknown]
  - Insomnia [Unknown]

NARRATIVE: CASE EVENT DATE: 2014
